FAERS Safety Report 11504420 (Version 2)
Quarter: 2015Q3

REPORT INFORMATION
  Report Type: Spontaneous
  Country: US (occurrence: US)
  Receive Date: 20150915
  Receipt Date: 20150918
  Transmission Date: 20151125
  Serious: No
  Sender: FDA-Public Use
  Company Number: US-ASTRAZENECA-2015SE84846

PATIENT
  Age: 35 Year
  Sex: Male
  Weight: 104.3 kg

DRUGS (17)
  1. ALPRAZOLAM XR [Concomitant]
     Active Substance: ALPRAZOLAM
  2. SEROQUEL [Suspect]
     Active Substance: QUETIAPINE FUMARATE
     Indication: BIPOLAR DISORDER
     Route: 048
     Dates: start: 2005, end: 2010
  3. DIVALPROEX XR [Concomitant]
     Indication: MANIA
     Dosage: TWO, 500MG PRIOR TO BEDTIME
  4. XANAX XR [Concomitant]
     Active Substance: ALPRAZOLAM
     Indication: ANXIETY
     Dosage: GENERIC, 1-2 MG AS NEEDED
     Dates: start: 2011
  5. PRISTIQ EXTENDED RELEASE [Concomitant]
     Active Substance: DESVENLAFAXINE SUCCINATE
     Indication: DEPRESSION
     Dates: start: 201412
  6. SEROQUEL [Suspect]
     Active Substance: QUETIAPINE FUMARATE
     Indication: BIPOLAR DISORDER
     Route: 048
     Dates: start: 201505
  7. LATUDA [Concomitant]
     Active Substance: LURASIDONE HYDROCHLORIDE
     Indication: DEPRESSION
     Dates: start: 201412, end: 201507
  8. KLONOPIN [Concomitant]
     Active Substance: CLONAZEPAM
     Indication: ANXIETY
     Dates: start: 2000, end: 2006
  9. ATIVAN [Concomitant]
     Active Substance: LORAZEPAM
     Indication: SLEEP DISORDER
     Dosage: AS REQUIRED
     Dates: start: 2006, end: 2010
  10. VALIUM [Concomitant]
     Active Substance: DIAZEPAM
     Indication: SLEEP DISORDER
     Dosage: 5MG OR 10MG
     Dates: start: 2012, end: 201310
  11. KLONOPIN [Concomitant]
     Active Substance: CLONAZEPAM
     Indication: SLEEP DISORDER
     Dates: start: 2000, end: 2006
  12. ATIVAN [Concomitant]
     Active Substance: LORAZEPAM
     Indication: ANXIETY
     Dosage: AS REQUIRED
     Dates: start: 2006, end: 2010
  13. SEROQUEL [Suspect]
     Active Substance: QUETIAPINE FUMARATE
     Indication: BIPOLAR DISORDER
     Route: 048
     Dates: start: 2010, end: 201505
  14. AMBIEN [Concomitant]
     Active Substance: ZOLPIDEM TARTRATE
     Indication: INSOMNIA
     Dates: start: 2012
  15. WELLBUTRIN XL [Concomitant]
     Active Substance: BUPROPION HYDROCHLORIDE
     Indication: DEPRESSION
     Dates: start: 2013
  16. VALIUM [Concomitant]
     Active Substance: DIAZEPAM
     Indication: ANXIETY
     Dosage: 5MG OR 10MG
     Dates: start: 2012, end: 201310
  17. XANAX XR [Concomitant]
     Active Substance: ALPRAZOLAM
     Indication: SLEEP DISORDER
     Dosage: GENERIC, 1-2 MG AS NEEDED
     Dates: start: 2011

REACTIONS (6)
  - Adverse drug reaction [Unknown]
  - Drug ineffective [Not Recovered/Not Resolved]
  - Thirst [Not Recovered/Not Resolved]
  - Weight increased [Not Recovered/Not Resolved]
  - Dry mouth [Unknown]
  - Negative thoughts [Not Recovered/Not Resolved]

NARRATIVE: CASE EVENT DATE: 2005
